FAERS Safety Report 8765876 (Version 2)
Quarter: 2012Q4

REPORT INFORMATION
  Report Type: Report from Study
  Country: JP (occurrence: JP)
  Receive Date: 20120904
  Receipt Date: 20120927
  Transmission Date: 20130627
  Serious: Yes (Life-Threatening)
  Sender: FDA-Public Use
  Company Number: JP-PFIZER INC-2012214202

PATIENT
  Age: 68 Year
  Sex: Male
  Weight: 51 kg

DRUGS (5)
  1. TEMSIROLIMUS [Suspect]
     Indication: METASTATIC RENAL CELL CARCINOMA
     Dosage: 25 mg, cyclic, weekly
     Dates: start: 20110119
  2. POLARAMINE [Concomitant]
     Indication: PROPHYLAXIS
     Dosage: 5 mg, 1x/day
  3. ALLELOCK [Concomitant]
     Dosage: 5 mg, 2x/day
     Route: 048
     Dates: start: 20110128, end: 20110210
  4. OXYCONTIN [Concomitant]
     Dosage: 5 mg, 2x/day
     Route: 048
  5. LOXONIN [Concomitant]
     Dosage: 60 mg, 2x/day
     Route: 048
     Dates: start: 20110210

REACTIONS (1)
  - Malignant pleural effusion [Recovered/Resolved]
